FAERS Safety Report 24636464 (Version 1)
Quarter: 2024Q4

REPORT INFORMATION
  Report Type: Spontaneous
  Country: JP (occurrence: JP)
  Receive Date: 20241119
  Receipt Date: 20241119
  Transmission Date: 20250114
  Serious: Yes (Hospitalization)
  Sender: MYLAN
  Company Number: JP-MYLANLABS-2024M1102843

PATIENT
  Age: 77 Year
  Sex: Male

DRUGS (6)
  1. IMIDAPRIL HYDROCHLORIDE [Suspect]
     Active Substance: IMIDAPRIL HYDROCHLORIDE
     Indication: Chronic kidney disease
     Dosage: 5 MILLIGRAM, QD
     Route: 048
  2. AMLODIPINE [Suspect]
     Active Substance: AMLODIPINE BESYLATE
     Indication: Chronic kidney disease
     Dosage: 10 MILLIGRAM, QD
     Route: 048
  3. BISOPROLOL FUMARATE [Suspect]
     Active Substance: BISOPROLOL FUMARATE
     Indication: Chronic kidney disease
     Dosage: 0.625 MILLIGRAM, QD
     Route: 048
  4. DOXAZOSIN [Suspect]
     Active Substance: DOXAZOSIN\DOXAZOSIN MESYLATE
     Indication: Chronic kidney disease
     Dosage: 4 MILLIGRAM, QD
     Route: 048
  5. FUROSEMIDE [Suspect]
     Active Substance: FUROSEMIDE
     Indication: Chronic kidney disease
     Dosage: 160 MILLIGRAM, QD
     Route: 048
  6. VILDAGLIPTIN [Suspect]
     Active Substance: VILDAGLIPTIN
     Indication: Chronic kidney disease
     Dosage: 50 MILLIGRAM, QD
     Route: 048

REACTIONS (1)
  - BRASH syndrome [Recovered/Resolved]
